FAERS Safety Report 9714152 (Version 2)
Quarter: 2015Q3

REPORT INFORMATION
  Report Type: Spontaneous
  Country: US (occurrence: US)
  Receive Date: 20131126
  Receipt Date: 20150803
  Transmission Date: 20151125
  Serious: No
  Sender: FDA-Public Use
  Company Number: US-GILEAD-2008-0019096

PATIENT
  Age: 78 Year
  Sex: Female
  Weight: 79.38 kg

DRUGS (10)
  1. LASIX [Concomitant]
     Active Substance: FUROSEMIDE
  2. ALLOPURINOL. [Concomitant]
     Active Substance: ALLOPURINOL
  3. FISH OIL [Concomitant]
     Active Substance: FISH OIL
  4. LETAIRIS [Suspect]
     Active Substance: AMBRISENTAN
     Indication: PULMONARY ARTERIAL HYPERTENSION
     Route: 048
     Dates: start: 20080627
  5. FOLIC ACID. [Concomitant]
     Active Substance: FOLIC ACID
  6. POTASSIUM CL [Concomitant]
     Active Substance: POTASSIUM CHLORIDE
  7. CALCIUM [Concomitant]
     Active Substance: CALCIUM
  8. COUMADIN [Concomitant]
     Active Substance: WARFARIN SODIUM
  9. TOPROL XL [Concomitant]
     Active Substance: METOPROLOL SUCCINATE
  10. MULTIVITAMIN [Concomitant]
     Active Substance: VITAMINS

REACTIONS (2)
  - Abdominal discomfort [None]
  - Abdominal pain upper [None]
